FAERS Safety Report 5816698-7 (Version None)
Quarter: 2008Q3

REPORT INFORMATION
  Report Type: 
  Country: None (occurrence: None)
  Receive Date: 20080721
  Receipt Date: 20080616
  Transmission Date: 20090109
  Serious: Yes (Other)
  Sender: FDA-Public Use
  Company Number: US-BRISTOL-MYERS SQUIBB COMPANY-14229785

PATIENT
  Sex: Female

DRUGS (19)
  1. ESTRACE [Suspect]
     Indication: HORMONE REPLACEMENT THERAPY
  2. ESTRADIOL [Suspect]
     Indication: HORMONE REPLACEMENT THERAPY
  3. PREMARIN [Suspect]
     Indication: HORMONE REPLACEMENT THERAPY
  4. AYGESTIN [Suspect]
     Indication: HORMONE REPLACEMENT THERAPY
  5. PREMPHASE 14/14 [Suspect]
     Indication: HORMONE REPLACEMENT THERAPY
  6. CYCRIN [Suspect]
     Indication: HORMONE REPLACEMENT THERAPY
  7. PREMPRO [Suspect]
     Indication: HORMONE REPLACEMENT THERAPY
  8. OGEN [Suspect]
     Indication: HORMONE REPLACEMENT THERAPY
  9. ACTIVELLA [Suspect]
     Indication: HORMONE REPLACEMENT THERAPY
  10. PROVERA [Suspect]
     Indication: HORMONE REPLACEMENT THERAPY
  11. ESTINYL [Suspect]
     Indication: HORMONE REPLACEMENT THERAPY
  12. CENESTIN [Suspect]
     Indication: HORMONE REPLACEMENT THERAPY
  13. FEMHRT [Suspect]
     Indication: HORMONE REPLACEMENT THERAPY
  14. ESTRATEST [Suspect]
     Indication: HORMONE REPLACEMENT THERAPY
  15. PROMETRIUM [Suspect]
     Indication: HORMONE REPLACEMENT THERAPY
  16. PREFEST [Suspect]
     Indication: HORMONE REPLACEMENT THERAPY
  17. ESTROGENIC SUBSTANCE [Suspect]
     Indication: HORMONE REPLACEMENT THERAPY
  18. MEDROXYPROGESTERONE [Suspect]
     Indication: HORMONE REPLACEMENT THERAPY
  19. ESTROGENIC SUBSTANCE [Suspect]

REACTIONS (1)
  - BREAST CANCER [None]
